FAERS Safety Report 5220297-8 (Version None)
Quarter: 2007Q1

REPORT INFORMATION
  Report Type: 
  Country: None (occurrence: None)
  Receive Date: 20061201
  Receipt Date: 20060713
  Transmission Date: 20070707
  Serious: No
  Sender: FDA-Public Use
  Company Number: 2006PV017506

PATIENT
  Age: 68 Year
  Sex: Male
  Weight: 126.1 kg

DRUGS (16)
  1. BYETTA [Suspect]
     Indication: DIABETES MELLITUS NON-INSULIN-DEPENDENT
     Dosage: SEE IMAGE
     Route: 058
     Dates: start: 20060301, end: 20060601
  2. BYETTA [Suspect]
     Indication: DIABETES MELLITUS NON-INSULIN-DEPENDENT
     Dosage: SEE IMAGE
     Route: 058
     Dates: start: 20060601
  3. ACTOS /USA/ [Concomitant]
  4. GLUCOTROL [Concomitant]
  5. SYNTHROID [Concomitant]
  6. ASPIRIN [Concomitant]
  7. SOTALOR HCL [Concomitant]
  8. PREVACID [Concomitant]
  9. LIPITOR [Concomitant]
  10. K-DUR 10 [Concomitant]
  11. ASCORBIC ACID [Concomitant]
  12. ALTACE [Concomitant]
  13. FISH OIL [Concomitant]
  14. TOPROL-XL [Concomitant]
  15. EFFEXOR XR [Concomitant]
  16. NEURONTIN [Concomitant]

REACTIONS (4)
  - BLOOD GLUCOSE INCREASED [None]
  - DECREASED APPETITE [None]
  - DYSGEUSIA [None]
  - WEIGHT DECREASED [None]
